FAERS Safety Report 8587732-9 (Version None)
Quarter: 2012Q3

REPORT INFORMATION
  Report Type: 
  Country: None (occurrence: None)
  Receive Date: 20120813
  Receipt Date: 20120807
  Transmission Date: 20120928
  Serious: Yes (Other)
  Sender: FDA-Public Use
  Company Number: CA-AMGEN-CANSP2012049631

PATIENT
  Age: 73 Year
  Sex: Female
  Weight: 59 kg

DRUGS (14)
  1. ATIVAN [Concomitant]
     Dosage: UNK
     Route: 065
  2. EURO DOCUSATE C [Concomitant]
     Dosage: UNK
     Route: 065
  3. RABEPRAZOLE SODIUM [Concomitant]
     Dosage: UNK
     Route: 065
  4. LYRICA [Suspect]
     Dosage: 150 MG, UNK
  5. RHOVANE [Concomitant]
     Dosage: UNK
     Route: 065
  6. ADALAT CC [Concomitant]
     Dosage: UNK
     Route: 065
  7. ARAVA [Concomitant]
     Dosage: UNK
     Route: 065
  8. ENBREL [Suspect]
     Indication: PRODUCT USED FOR UNKNOWN INDICATION
     Dosage: 25 MG, Q2WK
     Route: 058
  9. PLAQUENIL [Concomitant]
     Dosage: UNK
     Route: 065
  10. CELEBREX [Concomitant]
     Dosage: UNK
     Route: 065
  11. LIPITOR [Concomitant]
     Dosage: UNK
     Route: 065
  12. OXYTETRACYCLINE [Concomitant]
     Dosage: UNK
     Route: 065
  13. LYRICA [Suspect]
     Dosage: 100 MG, QD
     Route: 048
  14. CALCIUM [Concomitant]
     Dosage: UNK
     Route: 065

REACTIONS (2)
  - PAIN [None]
  - VISION BLURRED [None]
